FAERS Safety Report 24022631 (Version 3)
Quarter: 2024Q3

REPORT INFORMATION
  Report Type: Spontaneous
  Country: IN (occurrence: IN)
  Receive Date: 20240627
  Receipt Date: 20240710
  Transmission Date: 20241016
  Serious: No
  Sender: ROCHE
  Company Number: IN-ROCHE-3519845

PATIENT
  Age: 66 Year
  Sex: Male
  Weight: 85.0 kg

DRUGS (2)
  1. VABYSMO [Suspect]
     Active Substance: FARICIMAB\FARICIMAB-SVOA
     Indication: Age-related macular degeneration
     Dosage: ON 28/FEB/2024,HE RECEIVED SECOND INFUSION?THIRD INFUSION OF VABYSMO ON 13/APR/2024, FOURTH INFUSION
     Route: 050
     Dates: start: 20240118
  2. VABYSMO [Suspect]
     Active Substance: FARICIMAB\FARICIMAB-SVOA
     Route: 050

REACTIONS (2)
  - Off label use [Unknown]
  - No adverse event [Unknown]
